FAERS Safety Report 17072516 (Version 2)
Quarter: 2019Q4

REPORT INFORMATION
  Report Type: Report from Study
  Country: KR (occurrence: KR)
  Receive Date: 20191125
  Receipt Date: 20191212
  Transmission Date: 20200122
  Serious: Yes (Death, Other)
  Sender: FDA-Public Use
  Company Number: KR-PFIZER INC-2019453040

PATIENT
  Age: 76 Year
  Sex: Male
  Weight: 51.2 kg

DRUGS (12)
  1. GLASDEGIB [Suspect]
     Active Substance: GLASDEGIB
     Indication: ACUTE MYELOID LEUKAEMIA
     Dosage: ONCE DAILY CONTINUOUS
     Route: 048
     Dates: start: 20190827, end: 20191020
  2. MAGO [MAGNESIUM OXIDE] [Concomitant]
     Indication: CONSTIPATION
     Dosage: 1 CAPSULE, 2X/DAY
     Route: 048
     Dates: start: 20190910
  3. GASPIRAN [Concomitant]
     Indication: GASTROINTESTINAL PAIN
     Dosage: 1 TABLET, 3X/DAY
     Route: 048
     Dates: start: 20190903
  4. LEFEXIN [Concomitant]
     Indication: INFECTION PROPHYLAXIS
     Dosage: 1 TABLET, 2X/DAY
     Route: 048
     Dates: start: 20190905
  5. NORVASC [Concomitant]
     Active Substance: AMLODIPINE BESYLATE
     Indication: HYPERTENSION
     Dosage: 1 TABLET, 1X/DAY
     Route: 048
     Dates: start: 2017
  6. MEGACE F [Concomitant]
     Indication: DECREASED APPETITE
     Dosage: 5 ML, 2X/DAY 325MG/5ML
     Route: 048
     Dates: start: 20190903
  7. NEWRABELL [Concomitant]
     Indication: GASTROINTESTINAL PAIN
     Dosage: 1 TABLET, 2X/DAY
     Route: 048
     Dates: start: 20190903
  8. AZACITIDINE. [Suspect]
     Active Substance: AZACITIDINE
     Dosage: 117 MG, DAILY FOR 7 DAYS (EXCEPT WEEKENDS)
     Route: 058
     Dates: start: 20190923, end: 20191001
  9. NOXAFIL [Concomitant]
     Active Substance: POSACONAZOLE
     Indication: INFECTION PROPHYLAXIS
     Dosage: 3 TABLET, 1X/DAY
     Route: 048
     Dates: start: 20190830
  10. AZACITIDINE. [Suspect]
     Active Substance: AZACITIDINE
     Indication: ACUTE MYELOID LEUKAEMIA
     Dosage: 119.25 MG, DAILY FOR 7 DAYS (EXCEPT WEEKENDS)
     Route: 058
     Dates: start: 20190827, end: 20190904
  11. LIVALO [Concomitant]
     Active Substance: PITAVASTATIN CALCIUM
     Indication: HYPERLIPIDAEMIA
     Dosage: 1 TABLET, 1X/DAY
     Route: 048
     Dates: start: 2017
  12. RAMSET [Concomitant]
     Indication: PROPHYLAXIS OF NAUSEA AND VOMITING
     Dosage: 1 AMPLE, 1X/DAY
     Route: 042
     Dates: start: 20190923, end: 20190923

REACTIONS (1)
  - Partial seizures [Not Recovered/Not Resolved]

NARRATIVE: CASE EVENT DATE: 20190923
